FAERS Safety Report 5359978-4 (Version None)
Quarter: 2007Q2

REPORT INFORMATION
  Report Type: 
  Country: None (occurrence: None)
  Receive Date: 20070617
  Receipt Date: 20070606
  Transmission Date: 20071010
  Serious: Yes (Death)
  Sender: FDA-Public Use
  Company Number: DE-JNJFOC-20070601664

PATIENT
  Age: 60 Year
  Sex: Female

DRUGS (1)
  1. REMICADE [Suspect]
     Indication: RHEUMATOID ARTHRITIS
     Dosage: 3 INFUSIONS TOTAL
     Route: 042

REACTIONS (3)
  - FUNGAL SEPSIS [None]
  - PNEUMOCYSTIS JIROVECI INFECTION [None]
  - PNEUMONIA PRIMARY ATYPICAL [None]
